FAERS Safety Report 15387370 (Version 1)
Quarter: 2018Q3

REPORT INFORMATION
  Report Type: Spontaneous
  Country: US (occurrence: US)
  Receive Date: 20180914
  Receipt Date: 20180914
  Transmission Date: 20181010
  Serious: Yes (Other)
  Sender: FDA-Public Use
  Company Number: US-TEVA-2018-US-953582

PATIENT

DRUGS (1)
  1. LAMOTRIGINE. [Suspect]
     Active Substance: LAMOTRIGINE
     Dosage: DOSE: 150MG

REACTIONS (9)
  - Withdrawal syndrome [Unknown]
  - Suicidal ideation [Unknown]
  - Feeling abnormal [Unknown]
  - Depression [Unknown]
  - Irritability [Unknown]
  - Fear [Unknown]
  - Hostility [Unknown]
  - Wrong technique in product usage process [Unknown]
  - Anger [Unknown]
